FAERS Safety Report 21773873 (Version 1)
Quarter: 2022Q4

REPORT INFORMATION
  Report Type: Spontaneous
  Country: US (occurrence: None)
  Receive Date: 20221222
  Receipt Date: 20221222
  Transmission Date: 20230113
  Serious: No
  Sender: FDA-Public Use
  Company Number: None

PATIENT
  Sex: Female
  Weight: 60.78 kg

DRUGS (18)
  1. LENALIDOMIDE [Suspect]
     Active Substance: LENALIDOMIDE
     Indication: Plasma cell myeloma
     Dosage: FREQUENCY : DAILY;?
     Route: 048
  2. ASPIRIN [Concomitant]
     Active Substance: ASPIRIN
  3. ATORVASTATIN [Concomitant]
     Active Substance: ATORVASTATIN
  4. CALCITRENE [Concomitant]
     Active Substance: CALCIPOTRIENE
  5. COENZYME Q10 [Concomitant]
     Active Substance: DIETARY SUPPLEMENT\UBIDECARENONE
  6. DIFLUPREDNATE [Concomitant]
     Active Substance: DIFLUPREDNATE
  7. FISH OIL [Concomitant]
     Active Substance: FISH OIL
  8. FLUOROURACIL [Concomitant]
     Active Substance: FLUOROURACIL
  9. GABAPENTIN [Concomitant]
     Active Substance: GABAPENTIN
  10. LEVOTHYROXINE [Concomitant]
     Active Substance: LEVOTHYROXINE
  11. LYRICA [Concomitant]
     Active Substance: PREGABALIN
  12. METOPROLOL TARTRATE [Concomitant]
     Active Substance: METOPROLOL TARTRATE
  13. Pentoifylline [Concomitant]
  14. POTASSIUM [Concomitant]
     Active Substance: POTASSIUM
  15. PREDNISOLONE [Concomitant]
     Active Substance: PREDNISOLONE
  16. VITAMIN E [Concomitant]
     Active Substance: .ALPHA.-TOCOPHEROL
  17. RAMIPRIL [Concomitant]
     Active Substance: RAMIPRIL
  18. TYLENOL [Concomitant]
     Active Substance: ACETAMINOPHEN

REACTIONS (3)
  - Blood potassium decreased [None]
  - Laboratory test abnormal [None]
  - Therapy interrupted [None]
